FAERS Safety Report 10243426 (Version 1)
Quarter: 2014Q2

REPORT INFORMATION
  Report Type: Spontaneous
  Country: US (occurrence: None)
  Receive Date: 20140616
  Receipt Date: 20140616
  Transmission Date: 20141212
  Serious: Yes (Hospitalization)
  Sender: FDA-Public Use
  Company Number: UNT-2014-001885

PATIENT
  Sex: Female

DRUGS (1)
  1. REMODULIN (TREPROSTINIL SODIUM) INJECTION, 5MG/ML [Suspect]
     Indication: PULMONARY ARTERIAL HYPERTENSION
     Route: 058
     Dates: start: 20110614

REACTIONS (3)
  - Blood pressure decreased [None]
  - Convulsion [None]
  - Drug dose omission [None]
